FAERS Safety Report 6011172-X (Version None)
Quarter: 2008Q4

REPORT INFORMATION
  Report Type: 
  Country: None (occurrence: None)
  Receive Date: 20081218
  Receipt Date: 20081212
  Transmission Date: 20090506
  Serious: Yes (Life-Threatening, Hospitalization, Disabling, Other)
  Sender: FDA-Public Use
  Company Number: US-MERCK-0809USA02401

PATIENT
  Age: 49 Year
  Sex: Male
  Weight: 74 kg

DRUGS (10)
  1. VYTORIN [Suspect]
     Indication: HYPERLIPIDAEMIA
     Route: 048
  2. WELCHOL [Concomitant]
     Route: 065
  3. METFORMIN [Concomitant]
     Route: 065
  4. ALTACE [Concomitant]
     Route: 065
  5. PLAVIX [Concomitant]
     Route: 065
  6. NOVOLOG [Concomitant]
     Route: 065
  7. LANTUS [Concomitant]
     Route: 065
  8. NIASPAN [Concomitant]
     Route: 065
  9. TOPROL-XL [Concomitant]
     Route: 065
  10. NITRO-DUR [Concomitant]
     Route: 065

REACTIONS (3)
  - LETHARGY [None]
  - MOVEMENT DISORDER [None]
  - RHABDOMYOLYSIS [None]
